FAERS Safety Report 15785994 (Version 1)
Quarter: 2019Q1

REPORT INFORMATION
  Report Type: Spontaneous
  Country: US (occurrence: US)
  Receive Date: 20190103
  Receipt Date: 20190103
  Transmission Date: 20190417
  Serious: Yes (Other)
  Sender: FDA-Public Use
  Company Number: None

PATIENT
  Age: 34 Year
  Sex: Female
  Weight: 79.2 kg

DRUGS (5)
  1. HYDROCODONE 5/325 [Suspect]
     Active Substance: HYDROCODONE
     Indication: MYALGIA
     Route: 048
     Dates: start: 20181226, end: 20181230
  2. HYDROCODONE 5/325 [Suspect]
     Active Substance: HYDROCODONE
     Indication: INTERVERTEBRAL DISC DISORDER
     Route: 048
     Dates: start: 20181226, end: 20181230
  3. EXCEDRIN [Concomitant]
     Active Substance: ACETAMINOPHEN\ASPIRIN\CAFFEINE
  4. FLUOXETINE [Concomitant]
     Active Substance: FLUOXETINE HYDROCHLORIDE
  5. OLLY PRENATAL VITAMINS [Concomitant]

REACTIONS (13)
  - Fatigue [None]
  - Dizziness [None]
  - Asthenia [None]
  - Bedridden [None]
  - Neck pain [None]
  - Nausea [None]
  - Treatment failure [None]
  - Muscle spasms [None]
  - Feeling abnormal [None]
  - Headache [None]
  - Vomiting [None]
  - Product substitution issue [None]
  - Head discomfort [None]

NARRATIVE: CASE EVENT DATE: 20181226
